FAERS Safety Report 5597752-4 (Version None)
Quarter: 2007Q4

REPORT INFORMATION
  Report Type: 
  Country: None (occurrence: None)
  Receive Date: 20071221
  Receipt Date: 20070823
  Transmission Date: 20080405
  Serious: No
  Sender: FDA-Public Use
  Company Number: US-CVT-070152

PATIENT
  Age: 47 Year
  Sex: Female

DRUGS (9)
  1. RANEXA [Suspect]
     Dosage: 500 MG, CT, ORAL ; 500 MG, SINGLE, ORAL
     Route: 048
     Dates: start: 20070815, end: 20070815
  2. RANEXA [Suspect]
     Dosage: 500 MG, CT, ORAL ; 500 MG, SINGLE, ORAL
     Route: 048
     Dates: start: 20070818, end: 20070818
  3. LEVOXYL [Concomitant]
  4. MICARDIS [Concomitant]
  5. DYAZIDE [Concomitant]
  6. METFORMIN/000082701/ (METFORMIN) [Concomitant]
  7. ISOSORBIDE (ISOSORBIDE) [Concomitant]
  8. ATENOLOL [Concomitant]
  9. PROZAC [Concomitant]

REACTIONS (5)
  - FEELING DRUNK [None]
  - GAIT DISTURBANCE [None]
  - IMPAIRED DRIVING ABILITY [None]
  - MENTAL IMPAIRMENT [None]
  - SOMNOLENCE [None]
